FAERS Safety Report 22974015 (Version 3)
Quarter: 2023Q4

REPORT INFORMATION
  Report Type: Report from Study
  Country: US (occurrence: US)
  Receive Date: 20230922
  Receipt Date: 20231031
  Transmission Date: 20240110
  Serious: Yes (Other)
  Sender: FDA-Public Use
  Company Number: US-ABBVIE-5413846

PATIENT
  Sex: Female

DRUGS (1)
  1. RINVOQ [Suspect]
     Active Substance: UPADACITINIB
     Indication: Ankylosing spondylitis
     Route: 048
     Dates: start: 20220815, end: 2023

REACTIONS (7)
  - Systemic lupus erythematosus [Not Recovered/Not Resolved]
  - Back pain [Unknown]
  - Urinary tract infection [Recovering/Resolving]
  - Intervertebral disc disorder [Not Recovered/Not Resolved]
  - Bladder spasm [Recovering/Resolving]
  - Feeling abnormal [Unknown]
  - Urinary tract infection [Recovered/Resolved]

NARRATIVE: CASE EVENT DATE: 20230101
